FAERS Safety Report 8818490 (Version 1)
Quarter: 2012Q4

REPORT INFORMATION
  Report Type: Spontaneous
  Country: US (occurrence: None)
  Receive Date: 20121003
  Receipt Date: 20121003
  Transmission Date: 20130627
  Serious: Yes (Hospitalization)
  Sender: FDA-Public Use
  Company Number: NSR_00668_2012

PATIENT
  Age: 23 Month
  Sex: Female

DRUGS (1)
  1. CLONIDINE [Suspect]

REACTIONS (6)
  - Lethargy [None]
  - Apnoea [None]
  - Product compounding quality issue [None]
  - Bradycardia [None]
  - Hyperglycaemia [None]
  - Medication error [None]
